FAERS Safety Report 8807846 (Version 2)
Quarter: 2012Q4

REPORT INFORMATION
  Report Type: Report from Study
  Country: US (occurrence: US)
  Receive Date: 20120925
  Receipt Date: 20120928
  Transmission Date: 20130627
  Serious: Yes (Hospitalization)
  Sender: FDA-Public Use
  Company Number: US-GLAXOSMITHKLINE-B0820233B

PATIENT
  Age: 64 Year
  Sex: Male
  Weight: 82.4 kg

DRUGS (17)
  1. FLUTICASONE FUROATE [Suspect]
     Indication: CHRONIC OBSTRUCTIVE PULMONARY DISEASE
  2. MULTIVITAMIN [Concomitant]
     Indication: PROPHYLAXIS
     Route: 048
  3. ALBUTEROL [Concomitant]
     Indication: CHRONIC OBSTRUCTIVE PULMONARY DISEASE
     Route: 055
     Dates: start: 2009
  4. OMEGA 3 FATTY ACIDS [Concomitant]
     Indication: PROPHYLAXIS
     Dosage: 1000MG Per day
     Route: 048
  5. PROGESTERONE [Concomitant]
     Indication: HORMONE REPLACEMENT THERAPY
     Dosage: 100MG Per day
     Route: 048
     Dates: start: 2005
  6. SIMVASTATIN [Concomitant]
     Indication: HYPERCHOLESTEROLAEMIA
     Dosage: 10MG Per day
     Route: 048
     Dates: start: 201004
  7. SPIRONOLACTONE [Concomitant]
     Indication: HYPERTENSION
     Dosage: 25MG Twice per day
     Route: 048
     Dates: start: 2009
  8. TRIAMCINOLONE [Concomitant]
     Indication: RASH
     Route: 061
     Dates: start: 20110912
  9. NITROGLYCERINE [Concomitant]
     Indication: CHEST PAIN
     Route: 060
     Dates: start: 20120221
  10. IPRATROPIUM [Concomitant]
     Indication: CHRONIC OBSTRUCTIVE PULMONARY DISEASE
     Dates: start: 2009
  11. ASPIRIN [Concomitant]
     Indication: PROPHYLAXIS
     Dosage: 325MG Per day
     Route: 048
  12. ATENOLOL [Concomitant]
     Indication: HYPERTENSION
     Dosage: 100MG Per day
     Route: 048
     Dates: start: 20090722
  13. ESTRADIOL [Concomitant]
     Indication: HORMONE REPLACEMENT THERAPY
     Dosage: 2MG Per day
     Route: 048
     Dates: start: 2005
  14. LEVOTHYROXINE [Concomitant]
     Indication: HYPOTHYROIDISM
     Dosage: 100MG Per day
     Route: 048
  15. FEXOFENADINE [Concomitant]
     Indication: PRURITUS
     Dosage: 180MG Per day
     Route: 048
     Dates: start: 20110919
  16. ISOSORBIDE [Concomitant]
     Indication: ANGINA PECTORIS
     Dosage: 90MG Per day
     Route: 048
     Dates: start: 20111018
  17. TOCOPHEROL [Concomitant]
     Indication: PROPHYLAXIS

REACTIONS (1)
  - Chest discomfort [Unknown]
